FAERS Safety Report 7047092-1 (Version None)
Quarter: 2010Q4

REPORT INFORMATION
  Report Type: 
  Country: None (occurrence: None)
  Receive Date: 20101007
  Receipt Date: 20100922
  Transmission Date: 20110411
  Serious: Yes (Other)
  Sender: FDA-Public Use
  Company Number: UK226529

PATIENT
  Sex: Female

DRUGS (2)
  1. KINERET [Suspect]
     Indication: POLYARTHRITIS
     Dosage: (1 MG/KG)
     Dates: start: 20040101, end: 20050101
  2. ETANERCEPT [Suspect]

REACTIONS (6)
  - HEPATOSPLENOMEGALY [None]
  - LIPOATROPHY [None]
  - OPPORTUNISTIC INFECTION [None]
  - PYREXIA [None]
  - RASH PRURITIC [None]
  - VISCERAL LEISHMANIASIS [None]
